FAERS Safety Report 8121015-6 (Version None)
Quarter: 2012Q1

REPORT INFORMATION
  Report Type: 
  Country: None (occurrence: None)
  Receive Date: 20120208
  Receipt Date: 20120125
  Transmission Date: 20120608
  Serious: Yes (Other)
  Sender: FDA-Public Use
  Company Number: US-UCBSA-033074

PATIENT
  Age: 26 Year
  Sex: Female
  Weight: 53.636 kg

DRUGS (6)
  1. MULTI-VITAMINS [Concomitant]
     Indication: PREGNANCY
     Route: 048
     Dates: start: 20110301
  2. CIMZIA [Suspect]
     Indication: CROHN'S DISEASE
     Route: 058
     Dates: start: 20090407
  3. VITAMIN B-12 [Concomitant]
     Indication: ABDOMINAL OPERATION
     Dosage: AS USED: 100 CC MONTHLY
     Route: 030
     Dates: start: 20090101
  4. LOMOTIL [Concomitant]
     Indication: DIARRHOEA
     Route: 048
  5. BIRTH CONTROL PILL [Concomitant]
     Indication: ORAL CONTRACEPTION
     Route: 048
  6. CIMZIA [Suspect]
     Dosage: LOT NUMBER: 61317, EXP DATE: ??/MAR/2013
     Route: 058
     Dates: start: 20111201, end: 20120109

REACTIONS (6)
  - PYREXIA [None]
  - BACK PAIN [None]
  - DEHYDRATION [None]
  - CYSTITIS [None]
  - PREGNANCY [None]
  - PREMATURE SEPARATION OF PLACENTA [None]
